FAERS Safety Report 11254036 (Version 1)
Quarter: 2015Q3

REPORT INFORMATION
  Report Type: Other
  Country: GB (occurrence: GB)
  Receive Date: 20150709
  Receipt Date: 20150709
  Transmission Date: 20151125
  Serious: Yes (Hospitalization)
  Sender: FDA-Public Use
  Company Number: GB-TARO PHARMACEUTICALS U.S.A., INC-2015SUN01555

PATIENT
  Age: 83 Year
  Sex: Female

DRUGS (18)
  1. SANDO-K [Concomitant]
     Active Substance: POTASSIUM BICARBONATE\POTASSIUM CHLORIDE
  2. GENTAMICIN. [Concomitant]
     Active Substance: GENTAMICIN
  3. SENNA [Concomitant]
     Active Substance: SENNA LEAF\SENNOSIDES\SENNOSIDES A AND B
  4. DIGOXIN. [Concomitant]
     Active Substance: DIGOXIN
  5. OXYCONTIN [Concomitant]
     Active Substance: OXYCODONE HYDROCHLORIDE
  6. PARACETAMOL [Concomitant]
     Active Substance: ACETAMINOPHEN
  7. TRIMETHOPRIM. [Concomitant]
     Active Substance: TRIMETHOPRIM
     Dates: end: 20150522
  8. COLECALCIFEROL [Concomitant]
     Active Substance: CHOLECALCIFEROL
  9. SIMVASTATIN. [Concomitant]
     Active Substance: SIMVASTATIN
  10. TAZOCIN [Concomitant]
     Active Substance: PIPERACILLIN SODIUM\TAZOBACTAM SODIUM
     Dates: end: 20150602
  11. BISOPROLOL [Concomitant]
     Active Substance: BISOPROLOL
  12. CITALOPRAM [Concomitant]
     Active Substance: CITALOPRAM HYDROBROMIDE
  13. VITAMIN K SUBSTANCES [Concomitant]
  14. WARFARIN [Suspect]
     Active Substance: WARFARIN
     Indication: PRODUCT USED FOR UNKNOWN INDICATION
     Dosage: UNK
     Route: 065
  15. LACTULOSE. [Concomitant]
     Active Substance: LACTULOSE
  16. NEFOPAM [Concomitant]
     Active Substance: NEFOPAM
  17. TINZAPARIN [Concomitant]
     Active Substance: TINZAPARIN
  18. FLUCONAZOLE. [Interacting]
     Active Substance: FLUCONAZOLE
     Indication: CANDIDURIA
     Dosage: 150 MG, STAT DOSE
     Route: 048
     Dates: start: 20150606, end: 20150606

REACTIONS (3)
  - International normalised ratio abnormal [Recovered/Resolved]
  - Inhibitory drug interaction [Recovered/Resolved]
  - Ischaemic stroke [Unknown]

NARRATIVE: CASE EVENT DATE: 20150608
